FAERS Safety Report 9815782 (Version 1)
Quarter: 2014Q1

REPORT INFORMATION
  Report Type: Spontaneous
  Country: US (occurrence: US)
  Receive Date: 20140114
  Receipt Date: 20140114
  Transmission Date: 20141002
  Serious: Yes (Death, Hospitalization)
  Sender: FDA-Public Use
  Company Number: US-BAYER-2014-002388

PATIENT
  Age: 22 Year
  Sex: Male

DRUGS (4)
  1. ACETYLSALICYLIC ACID (} 100 MG) [Suspect]
     Route: 048
  2. DOXYLAMINE [Suspect]
     Route: 048
  3. IBUPROFEN [Suspect]
     Route: 048
  4. ACETAMINOPHEN [Suspect]
     Route: 048

REACTIONS (7)
  - Toxicity to various agents [Fatal]
  - Intentional overdose [Fatal]
  - Cardiac arrest [Fatal]
  - Mental status changes [None]
  - Hearing impaired [None]
  - Pyrexia [None]
  - Asthenia [None]
